FAERS Safety Report 8283673 (Version 3)
Quarter: 2013Q1

REPORT INFORMATION
  Report Type: Spontaneous
  Country: US (occurrence: None)
  Receive Date: 20111205
  Receipt Date: 20130125
  Transmission Date: 20140127
  Serious: Yes (Other)
  Sender: FDA-Public Use
  Company Number: AUR-APL-2011-05982

PATIENT
  Age: 73 Year
  Sex: Female

DRUGS (22)
  1. ATENOLOL (ATENOLOL) [Suspect]
     Indication: PRODUCT USED FOR UNKNOWN INDICATION
  2. LISINOPRIL (LISINOPRIL) [Suspect]
     Indication: PRODUCT USED FOR UNKNOWN INDICATION
     Dosage: ORAL
     Route: 048
  3. SYMBICORT [Suspect]
     Indication: PRODUCT USED FOR UNKNOWN INDICATION
     Dosage: 80/4.5 MCG 2 PUFFS
     Route: 055
  4. TOPROL XL [Suspect]
     Indication: PRODUCT USED FOR UNKNOWN INDICATION
     Route: 048
  5. ASPIRIN (ACETYLSALICYLIC ACID) [Concomitant]
  6. ALLOPURINOL [Concomitant]
  7. COLCHICINE [Concomitant]
  8. VALIUM [Concomitant]
  9. ALBUTEROL SULFATE [Concomitant]
  10. PROVENTIL [Concomitant]
  11. OXYCODONE (OXYCODONE) [Concomitant]
  12. LASIX [Concomitant]
  13. CELEXA [Concomitant]
  14. CALAN [Concomitant]
  15. LIPITOR [Concomitant]
  16. VENTOLIN [Concomitant]
  17. CITALOPRAM HYDROBROMIDE [Concomitant]
  18. FUROSEMIDE (FUROSEMIDE) [Concomitant]
  19. FORADIL AEROLIZER (FORMOTEROL) [Concomitant]
  20. WELLBUTRIN [Concomitant]
  21. VERAPAMIL HYDROCHLORIDE [Concomitant]
  22. DILAUDID (HYDROMORPHONE HYDROCHLORIDE) INJECTION [Concomitant]

REACTIONS (18)
  - Angina pectoris [None]
  - Osteoarthritis [None]
  - Hypertension [None]
  - Hyperlipidaemia [None]
  - Chronic obstructive pulmonary disease [None]
  - Anxiety [None]
  - Depression [None]
  - Arthritis [None]
  - Arteriosclerosis coronary artery [None]
  - Gastrooesophageal reflux disease [None]
  - Arthralgia [None]
  - Asthma [None]
  - Gout [None]
  - Lung neoplasm [None]
  - Fall [None]
  - Limb injury [None]
  - Contusion [None]
  - Pain [None]
